FAERS Safety Report 8489520-0 (Version None)
Quarter: 2012Q3

REPORT INFORMATION
  Report Type: 
  Country: None (occurrence: None)
  Receive Date: 20120705
  Receipt Date: 20120625
  Transmission Date: 20120928
  Serious: Yes (Other)
  Sender: FDA-Public Use
  Company Number: FR-ASTRAZENECA-2012SE43878

PATIENT
  Age: 22285 Day
  Sex: Male

DRUGS (3)
  1. NEXIUM [Suspect]
     Route: 048
     Dates: start: 20110502
  2. ESCITALOPRAM [Suspect]
     Route: 048
     Dates: start: 20100616, end: 20110801
  3. ESCITALOPRAM [Suspect]
     Route: 048
     Dates: start: 20111219, end: 20120424

REACTIONS (2)
  - GYNAECOMASTIA [None]
  - BLOOD PROLACTIN INCREASED [None]
